FAERS Safety Report 5266600-4 (Version None)
Quarter: 2007Q1

REPORT INFORMATION
  Report Type: 
  Country: None (occurrence: None)
  Receive Date: 20070315
  Receipt Date: 20070303
  Transmission Date: 20070707
  Serious: Yes (Other)
  Sender: FDA-Public Use
  Company Number: US-PFIZER INC-2007016894

PATIENT
  Sex: Female
  Weight: 65.8 kg

DRUGS (4)
  1. DEPO-PROVERA [Suspect]
     Indication: ENDOMETRIOSIS
     Route: 030
  2. MEDROXYPROGESTERONE ACETATE SUSPENSION, STERILE [Suspect]
     Indication: ENDOMETRIOSIS
     Route: 030
  3. NEXIUM [Concomitant]
  4. CLARITIN [Concomitant]

REACTIONS (4)
  - BLINDNESS [None]
  - DRY EYE [None]
  - THERAPEUTIC RESPONSE DECREASED [None]
  - VISION BLURRED [None]
